FAERS Safety Report 5725625-2 (Version None)
Quarter: 2008Q2

REPORT INFORMATION
  Report Type: 
  Country: None (occurrence: None)
  Receive Date: 20080501
  Receipt Date: 20080408
  Transmission Date: 20081010
  Serious: No
  Sender: FDA-Public Use
  Company Number: US-BOEHRINGER INGELHEIM GMBH, GERMANY-2008-BP-02328BP

PATIENT
  Age: 62 Year
  Sex: Female

DRUGS (18)
  1. SPIRIVA [Suspect]
     Indication: CHRONIC OBSTRUCTIVE PULMONARY DISEASE
     Route: 055
     Dates: start: 20070101
  2. ZORAGRAN [Concomitant]
  3. ADVAIR HFA [Concomitant]
  4. ALBUTEROL [Concomitant]
  5. HYDROCODONE BITARTRATE [Concomitant]
  6. KLONOPIN [Concomitant]
  7. BACTRIM [Concomitant]
  8. LEXAPRO [Concomitant]
  9. DITROPAN XL [Concomitant]
  10. JANUVIA [Concomitant]
  11. RHINITROL [Concomitant]
  12. FORTEO [Concomitant]
  13. VYTORIN [Concomitant]
  14. LYDODERM PATCH [Concomitant]
  15. LYRICA [Concomitant]
  16. SEROQUEL [Concomitant]
  17. TRAZODONE HCL [Concomitant]
  18. OXYGEN [Concomitant]

REACTIONS (2)
  - CHOKING [None]
  - DYSPNOEA [None]
